FAERS Safety Report 12238178 (Version 1)
Quarter: 2016Q2

REPORT INFORMATION
  Report Type: Spontaneous
  Country: FR (occurrence: FR)
  Receive Date: 20160405
  Receipt Date: 20160405
  Transmission Date: 20160815
  Serious: Yes (Hospitalization, Other)
  Sender: FDA-Public Use
  Company Number: FR-GLAXOSMITHKLINE-FR2016GSK044299

PATIENT
  Age: 64 Year
  Sex: Male

DRUGS (3)
  1. MALARONE [Suspect]
     Active Substance: ATOVAQUONE\PROGUANIL HYDROCHLORIDE
     Indication: PYREXIA
     Dosage: 1000 MG, QD
     Route: 048
     Dates: start: 20151023, end: 20151025
  2. FLAGYL [Concomitant]
     Active Substance: METRONIDAZOLE\METRONIDAZOLE HYDROCHLORIDE
     Indication: PYREXIA
     Dosage: UNK
     Route: 065
     Dates: start: 20151014
  3. QUINIMAX [Concomitant]
     Indication: PYREXIA
     Dosage: UNK
     Route: 065
     Dates: start: 20151014

REACTIONS (1)
  - Haemolysis [Recovered/Resolved]

NARRATIVE: CASE EVENT DATE: 20151024
